FAERS Safety Report 16360074 (Version 2)
Quarter: 2020Q2

REPORT INFORMATION
  Report Type: Spontaneous
  Country: US (occurrence: US)
  Receive Date: 20190528
  Receipt Date: 20200408
  Transmission Date: 20200713
  Serious: Yes (Other)
  Sender: FDA-Public Use
  Company Number: US-GILEAD-2019-0409404

PATIENT
  Age: 52 Year
  Sex: Male

DRUGS (65)
  1. TRUVADA [Suspect]
     Active Substance: EMTRICITABINE\TENOFOVIR DISOPROXIL FUMARATE
     Indication: HIV INFECTION
     Dosage: 1 DOSAGE FORM (200-300 MG), QD
     Route: 048
     Dates: start: 200410, end: 201907
  2. GENVOYA [Concomitant]
     Active Substance: COBICISTAT\ELVITEGRAVIR\EMTRICITABINE\TENOFOVIR ALAFENAMIDE FUMARATE
     Indication: HIV INFECTION
  3. ZOVIRAX [Concomitant]
     Active Substance: ACYCLOVIR
  4. DOXYCYCLINE. [Concomitant]
     Active Substance: DOXYCYCLINE
  5. GUAIFENESIN + CODEINE [Concomitant]
  6. OXYCODONE AND ACETAMINOPHEN [Concomitant]
     Active Substance: ACETAMINOPHEN\OXYCODONE HYDROCHLORIDE
  7. CLOTRIMAZOLE. [Concomitant]
     Active Substance: CLOTRIMAZOLE
  8. TENORMIN [Concomitant]
     Active Substance: ATENOLOL
  9. LORATADINE AND PSEUDOEPHEDRINE SULFATE [Concomitant]
     Active Substance: LORATADINE\PSEUDOEPHEDRINE SULFATE
  10. LEVAQUIN [Concomitant]
     Active Substance: LEVOFLOXACIN
  11. IBUPROFEN. [Concomitant]
     Active Substance: IBUPROFEN
  12. ZYRTEC [Concomitant]
     Active Substance: CETIRIZINE HYDROCHLORIDE
  13. NAPROSYN [Concomitant]
     Active Substance: NAPROXEN
  14. TRIAMTERENE + HCTZ [Concomitant]
     Active Substance: HYDROCHLOROTHIAZIDE\TRIAMTERENE
  15. LORATADINE. [Concomitant]
     Active Substance: LORATADINE
  16. DESOXIMETASONE. [Concomitant]
     Active Substance: DESOXIMETASONE
  17. CIPROFLOXACIN. [Concomitant]
     Active Substance: CIPROFLOXACIN
  18. DUREZOL [Concomitant]
     Active Substance: DIFLUPREDNATE
  19. REYATAZ [Concomitant]
     Active Substance: ATAZANAVIR SULFATE
  20. TOPROL XL [Concomitant]
     Active Substance: METOPROLOL SUCCINATE
  21. ANTIVERT [Concomitant]
     Active Substance: MECLIZINE HYDROCHLORIDE
  22. SUSTIVA [Concomitant]
     Active Substance: EFAVIRENZ
  23. ATENOLOL. [Concomitant]
     Active Substance: ATENOLOL
  24. CLINDAMYCIN. [Concomitant]
     Active Substance: CLINDAMYCIN
  25. EXEFEN-DMX [Concomitant]
  26. PROCTOFOAM HC [Concomitant]
     Active Substance: HYDROCORTISONE ACETATE\PRAMOXINE HYDROCHLORIDE
  27. ILEVRO [Concomitant]
     Active Substance: NEPAFENAC
  28. NORVIR [Concomitant]
     Active Substance: RITONAVIR
  29. ASPIRIN [ACETYLSALICYLIC ACID] [Concomitant]
     Active Substance: ASPIRIN
  30. DIFLUCAN [Concomitant]
     Active Substance: FLUCONAZOLE
  31. KENALOG [Concomitant]
     Active Substance: TRIAMCINOLONE ACETONIDE
  32. PREMARIN [Concomitant]
     Active Substance: ESTROGENS, CONJUGATED
  33. BENZACLIN TOPICAL [Concomitant]
  34. HYDROCODONE/ACETAMINOPHEN [Concomitant]
     Active Substance: ACETAMINOPHEN\HYDROCODONE
  35. SULFAMETHOXAZOLE AND TRIMETHOPRIM [Concomitant]
     Active Substance: SULFAMETHOXAZOLE\TRIMETHOPRIM
  36. NASOCORT [Concomitant]
     Active Substance: BUDESONIDE
  37. DOXEPIN HCL [Concomitant]
     Active Substance: DOXEPIN HYDROCHLORIDE
  38. MELOXICAM. [Concomitant]
     Active Substance: MELOXICAM
  39. MOBIC [Concomitant]
     Active Substance: MELOXICAM
  40. FERROUS SULFATE. [Concomitant]
     Active Substance: FERROUS SULFATE
  41. GABAPENTIN. [Concomitant]
     Active Substance: GABAPENTIN
  42. METHYLPREDNISOLONE. [Concomitant]
     Active Substance: METHYLPREDNISOLONE
  43. VIGAMOX [Concomitant]
     Active Substance: MOXIFLOXACIN HYDROCHLORIDE
  44. CELEXA [Concomitant]
     Active Substance: CITALOPRAM HYDROBROMIDE
  45. COZAAR [Concomitant]
     Active Substance: LOSARTAN POTASSIUM
  46. DELTASONE [Concomitant]
     Active Substance: PREDNISONE
  47. ACETAMINOPHEN AND CODEINE [Concomitant]
     Active Substance: ACETAMINOPHEN\CODEINE PHOSPHATE
  48. TIZANIDINE. [Concomitant]
     Active Substance: TIZANIDINE
  49. PROMETHAZINE [Concomitant]
     Active Substance: PROMETHAZINE HYDROCHLORIDE
  50. CLOTRIMAZOLE / BETAMETH [Concomitant]
     Active Substance: BETAMETHASONE DIPROPIONATE\CLOTRIMAZOLE
  51. HYDROQUINONE. [Concomitant]
     Active Substance: HYDROQUINONE
  52. TRAMADOL. [Concomitant]
     Active Substance: TRAMADOL
  53. EMTRIVA [Concomitant]
     Active Substance: EMTRICITABINE
  54. VIDEX [Concomitant]
     Active Substance: DIDANOSINE
  55. LISINOPRIL. [Concomitant]
     Active Substance: LISINOPRIL
  56. HYDROCORTISONE. [Concomitant]
     Active Substance: HYDROCORTISONE
  57. EPIVIR [Concomitant]
     Active Substance: LAMIVUDINE
  58. CYCLOBENZAPRINE. [Concomitant]
     Active Substance: CYCLOBENZAPRINE
  59. FLONASE [Concomitant]
     Active Substance: FLUTICASONE PROPIONATE
  60. AMOXIL [AMOXICILLIN] [Concomitant]
  61. ZOFRAN [Concomitant]
     Active Substance: ONDANSETRON HYDROCHLORIDE
  62. PREMPRO [Concomitant]
     Active Substance: ESTROGENS, CONJUGATED\MEDROXYPROGESTERONE ACETATE
  63. TRETINOIN. [Concomitant]
     Active Substance: TRETINOIN
  64. HYDROXYZINE [Concomitant]
     Active Substance: HYDROXYZINE HYDROCHLORIDE
  65. PREDNISONE. [Concomitant]
     Active Substance: PREDNISONE

REACTIONS (7)
  - Chronic kidney disease [Not Recovered/Not Resolved]
  - Anxiety [Not Recovered/Not Resolved]
  - Foot fracture [Recovered/Resolved]
  - Emotional distress [Not Recovered/Not Resolved]
  - Economic problem [Not Recovered/Not Resolved]
  - Anhedonia [Not Recovered/Not Resolved]
  - Pain [Not Recovered/Not Resolved]

NARRATIVE: CASE EVENT DATE: 201103
